FAERS Safety Report 25042108 (Version 1)
Quarter: 2025Q1

REPORT INFORMATION
  Report Type: Spontaneous
  Country: ES (occurrence: ES)
  Receive Date: 20250305
  Receipt Date: 20250305
  Transmission Date: 20250408
  Serious: Yes (Life-Threatening, Hospitalization)
  Sender: ORGANON
  Company Number: None

PATIENT
  Age: 52 Year
  Sex: Male
  Weight: 81 kg

DRUGS (9)
  1. ATORVASTATIN CALCIUM\EZETIMIBE [Interacting]
     Active Substance: ATORVASTATIN CALCIUM\EZETIMIBE
     Indication: Dyslipidaemia
     Route: 048
     Dates: start: 20240910
  2. ASPIRIN\RAMIPRIL\SIMVASTATIN [Interacting]
     Active Substance: ASPIRIN\RAMIPRIL\SIMVASTATIN
     Indication: Dyslipidaemia
     Dosage: ONE TABLET A DAY (28 CAPSULES)
     Route: 048
     Dates: start: 20240628
  3. EZETIMIBE [Interacting]
     Active Substance: EZETIMIBE
     Indication: Dyslipidaemia
     Dosage: ONE TABLET A DAY, IN SEPTEMBER IT IS REPLACED BY THE COMBINED ATOZET (28 TABLETS)
     Route: 048
     Dates: start: 20240628, end: 20240910
  4. FENOFIBRATE [Interacting]
     Active Substance: FENOFIBRATE
     Indication: Dyslipidaemia
     Route: 048
     Dates: start: 20240711
  5. BEMPEDOIC ACID [Interacting]
     Active Substance: BEMPEDOIC ACID
     Indication: Dyslipidaemia
     Route: 048
     Dates: start: 20241217
  6. ZYPREXA [Concomitant]
     Active Substance: OLANZAPINE
     Indication: Bipolar I disorder
     Dosage: 2.5 MILLIGRAM, QD (28 TABLETS)
     Dates: start: 201501
  7. PRASUGREL HYDROCHLORIDE [Concomitant]
     Active Substance: PRASUGREL HYDROCHLORIDE
     Indication: Acute coronary syndrome
     Dosage: 10 MILLIGRAM, QD (28 TABLETS)
     Dates: start: 20240628
  8. IVABRADINE [Concomitant]
     Active Substance: IVABRADINE
     Indication: Acute coronary syndrome
     Dates: start: 202406
  9. OMEPRAZOLE [Concomitant]
     Active Substance: OMEPRAZOLE
     Indication: Dyspepsia
     Dates: start: 202406

REACTIONS (2)
  - Acute kidney injury [Recovering/Resolving]
  - Product use in unapproved indication [Unknown]

NARRATIVE: CASE EVENT DATE: 20240910
